FAERS Safety Report 11071805 (Version 1)
Quarter: 2015Q2

REPORT INFORMATION
  Report Type: Spontaneous
  Country: AU (occurrence: None)
  Receive Date: 20150424
  Receipt Date: 20150424
  Transmission Date: 20150821
  Serious: Yes (Other)
  Sender: FDA-Public Use
  Company Number: AU-ZYDUS-007742

PATIENT
  Age: 41 Year
  Sex: Female

DRUGS (3)
  1. CLOZAPINE (CLOZAPINE) [Suspect]
     Active Substance: CLOZAPINE
  2. DOCETAXEL (DOCETAXEL) [Suspect]
     Active Substance: DOCETAXEL
  3. SODIUM VALPROATE (SODIUM VALPROATE) [Suspect]
     Active Substance: VALPROATE SODIUM

REACTIONS (2)
  - Neutropenia [None]
  - Leukopenia [None]
